FAERS Safety Report 4286004-0 (Version None)
Quarter: 2004Q1

REPORT INFORMATION
  Report Type: 
  Country: None (occurrence: None)
  Receive Date: 20040203
  Receipt Date: 20040122
  Transmission Date: 20041129
  Serious: Yes (Hospitalization)
  Sender: FDA-Public Use
  Company Number: 2003118610

PATIENT
  Age: 19 Year
  Sex: Female

DRUGS (3)
  1. ZELDOX [Suspect]
     Indication: ILL-DEFINED DISORDER
     Dosage: 40 MG (DAILY), ORAL
     Route: 048
  2. TOLTERODINE L-TARTRATE (TOLTERODINE L-TARTRATE) [Concomitant]
  3. MELATONIN (MELATONIN) [Concomitant]

REACTIONS (2)
  - HALLUCINATION [None]
  - HYPOMANIA [None]
